FAERS Safety Report 9053393 (Version 2)
Quarter: 2013Q1

REPORT INFORMATION
  Report Type: Spontaneous
  Country: FR (occurrence: FR)
  Receive Date: 20130208
  Receipt Date: 20130228
  Transmission Date: 20140127
  Serious: Yes (Life-Threatening, Hospitalization, Other)
  Sender: FDA-Public Use
  Company Number: FR-MERCK-1302FRA002169

PATIENT
  Age: 65 Year
  Sex: Male

DRUGS (5)
  1. XELEVIA [Suspect]
     Indication: TYPE 2 DIABETES MELLITUS
     Dosage: 100 MG, QD
     Route: 048
     Dates: start: 20121201, end: 20121212
  2. COVERAM [Suspect]
     Indication: HYPERTENSION
     Dosage: 5 MG, QD
     Route: 065
     Dates: start: 20121201, end: 20121212
  3. STAGID [Suspect]
     Indication: TYPE 2 DIABETES MELLITUS
     Dosage: 2100 MG, QD
     Route: 065
     Dates: start: 20121004, end: 20121212
  4. CRESTOR [Suspect]
     Indication: PRODUCT USED FOR UNKNOWN INDICATION
     Dosage: 5 MG, QD
     Route: 065
     Dates: start: 20120104
  5. OSLIF BREEZHALER [Suspect]
     Indication: PRODUCT USED FOR UNKNOWN INDICATION
     Dosage: UNK
     Route: 065

REACTIONS (4)
  - Hepatitis [Not Recovered/Not Resolved]
  - Drug-induced liver injury [Not Recovered/Not Resolved]
  - Diabetic ketoacidosis [Not Recovered/Not Resolved]
  - Diabetes mellitus inadequate control [Not Recovered/Not Resolved]
